FAERS Safety Report 8921942 (Version 1)
Quarter: 2012Q4

REPORT INFORMATION
  Report Type: Spontaneous
  Country: US (occurrence: None)
  Receive Date: 20121119
  Receipt Date: 20121119
  Transmission Date: 20130627
  Serious: Yes (Other)
  Sender: FDA-Public Use
  Company Number: None

PATIENT
  Age: 68 None
  Sex: Male
  Weight: 83.92 kg

DRUGS (11)
  1. AZITHROMYCIN [Suspect]
     Indication: COLD
     Dosage: 500mg once a day po
     Route: 048
     Dates: start: 20120917, end: 20120919
  2. LISINOPRIL [Concomitant]
  3. PLAVIX [Concomitant]
  4. ZOLOFT [Concomitant]
  5. ATIVAN [Concomitant]
  6. PROVENTIL [Concomitant]
  7. VITAMIN D [Concomitant]
  8. TOPIRAMATE [Concomitant]
  9. MINOCYCLINE [Concomitant]
  10. NEOLY/DEXAMETH [Concomitant]
  11. RESTASIS [Concomitant]

REACTIONS (6)
  - Urticaria [None]
  - Pruritus generalised [None]
  - Erythema [None]
  - Lip swelling [None]
  - Unevaluable event [None]
  - Nodule [None]
